FAERS Safety Report 25371262 (Version 1)
Quarter: 2025Q2

REPORT INFORMATION
  Report Type: Spontaneous
  Country: CA (occurrence: CA)
  Receive Date: 20250529
  Receipt Date: 20250529
  Transmission Date: 20250717
  Serious: Yes (Other)
  Sender: TEVA
  Company Number: CA-TEVA-VS-3334049

PATIENT
  Age: 77 Year
  Sex: Female

DRUGS (3)
  1. TOPIRAMATE [Suspect]
     Active Substance: TOPIRAMATE
     Indication: Chronic tic disorder
     Route: 065
  2. ARIPIPRAZOLE [Suspect]
     Active Substance: ARIPIPRAZOLE
     Indication: Chronic tic disorder
     Route: 065
  3. PRAMIPEXOLE [Concomitant]
     Active Substance: PRAMIPEXOLE
     Indication: Parkinson^s disease
     Route: 065

REACTIONS (5)
  - Dyskinesia [Unknown]
  - Restlessness [Unknown]
  - Parkinson^s disease [Unknown]
  - Drug ineffective [Unknown]
  - Cognitive disorder [Unknown]
